FAERS Safety Report 14521667 (Version 1)
Quarter: 2018Q1

REPORT INFORMATION
  Report Type: Report from Study
  Country: None (occurrence: AU)
  Receive Date: 20180212
  Receipt Date: 20180212
  Transmission Date: 20180509
  Serious: Yes (Hospitalization)
  Sender: FDA-Public Use
  Company Number: AU-ABBVIE-18P-008-2247360-00

PATIENT
  Age: 76 Year
  Sex: Male

DRUGS (17)
  1. VENETOCLAX. [Suspect]
     Active Substance: VENETOCLAX
     Indication: CHRONIC LYMPHOCYTIC LEUKAEMIA
     Route: 048
     Dates: start: 20120905, end: 20120918
  2. PANTOPRAZOLE [Concomitant]
     Active Substance: PANTOPRAZOLE
     Indication: GASTROOESOPHAGEAL REFLUX PROPHYLAXIS
     Route: 065
     Dates: start: 20150401
  3. ONDANSETRON [Concomitant]
     Active Substance: ONDANSETRON
     Indication: NAUSEA
     Route: 065
     Dates: start: 20170127
  4. BIOMAGNESIUM [Concomitant]
     Indication: PROPHYLAXIS
     Route: 065
     Dates: start: 20171027
  5. VENETOCLAX. [Suspect]
     Active Substance: VENETOCLAX
     Route: 048
     Dates: start: 20120919, end: 20120925
  6. CHOLECALCIFEROL [Concomitant]
     Active Substance: CHOLECALCIFEROL
     Indication: VITAMIN D DEFICIENCY
     Route: 065
     Dates: start: 201212
  7. IVIG [Concomitant]
     Active Substance: HUMAN IMMUNOGLOBULIN G
     Indication: VIRAL UPPER RESPIRATORY TRACT INFECTION
     Route: 065
     Dates: start: 20130711
  8. AMLODIPINE [Concomitant]
     Active Substance: AMLODIPINE BESYLATE
     Indication: HYPERTENSION
     Route: 065
     Dates: start: 20170228
  9. JANUVIA [Concomitant]
     Active Substance: SITAGLIPTIN PHOSPHATE
     Indication: HYPERGLYCAEMIA
     Route: 065
     Dates: start: 201410
  10. METFORMIN [Concomitant]
     Active Substance: METFORMIN HYDROCHLORIDE
     Indication: HYPERGLYCAEMIA
     Dosage: NOCTE
     Route: 050
     Dates: start: 201410
  11. FRUSEMIDE [Concomitant]
     Active Substance: FUROSEMIDE
     Indication: PROPHYLAXIS
     Dosage: STAT
     Route: 050
     Dates: start: 20180105, end: 20180105
  12. VENETOCLAX. [Suspect]
     Active Substance: VENETOCLAX
     Route: 048
     Dates: start: 20120926, end: 20121218
  13. ALLOPURINOL. [Concomitant]
     Active Substance: ALLOPURINOL
     Indication: PROPHYLAXIS
     Route: 065
     Dates: start: 20120831, end: 20121017
  14. VENETOCLAX. [Suspect]
     Active Substance: VENETOCLAX
     Route: 048
     Dates: start: 20121219
  15. ALLOPURINOL. [Concomitant]
     Active Substance: ALLOPURINOL
     Route: 065
     Dates: start: 20121017
  16. FOLATE [Concomitant]
     Active Substance: FOLATE SODIUM
     Indication: HAEMOLYSIS
     Route: 065
     Dates: start: 20130612
  17. VALACICLOVIR [Concomitant]
     Active Substance: VALACYCLOVIR HYDROCHLORIDE
     Indication: INFECTION PROPHYLAXIS
     Route: 065
     Dates: start: 20150402

REACTIONS (1)
  - Cardiomyopathy [Not Recovered/Not Resolved]

NARRATIVE: CASE EVENT DATE: 20180106
